FAERS Safety Report 9492912 (Version 4)
Quarter: 2018Q4

REPORT INFORMATION
  Report Type: Spontaneous
  Country: US (occurrence: US)
  Receive Date: 20130902
  Receipt Date: 20181011
  Transmission Date: 20190205
  Serious: Yes (Other)
  Sender: FDA-Public Use
  Company Number: US-AMGEN-USASP2013060923

PATIENT
  Age: 54 Year
  Sex: Female
  Weight: 53 kg

DRUGS (4)
  1. PROCRIT [Suspect]
     Active Substance: ERYTHROPOIETIN
     Dosage: 20000 UNIT, QWK
     Route: 065
     Dates: start: 20070530
  2. PROCRIT [Suspect]
     Active Substance: ERYTHROPOIETIN
     Dosage: 9000 UNIT, 3 TIMES/WK
     Route: 065
     Dates: start: 201302
  3. PROCRIT [Suspect]
     Active Substance: ERYTHROPOIETIN
     Indication: NEPHROGENIC ANAEMIA
     Dosage: 10000 UNIT, QWK
     Route: 065
     Dates: start: 20030417, end: 200705
  4. PROCRIT [Suspect]
     Active Substance: ERYTHROPOIETIN
     Dosage: 22000 UNIT, 3 TIMES/WK
     Route: 065
     Dates: end: 2013

REACTIONS (2)
  - Anaemia [Unknown]
  - Reticulocyte count abnormal [Unknown]

NARRATIVE: CASE EVENT DATE: 20130810
